FAERS Safety Report 26086907 (Version 2)
Quarter: 2025Q4

REPORT INFORMATION
  Report Type: Report from Study
  Country: GB (occurrence: GB)
  Receive Date: 20251125
  Receipt Date: 20251128
  Transmission Date: 20260118
  Serious: No
  Sender: NOVARTIS
  Company Number: GB-002147023-NVSC2025GB180014

PATIENT
  Age: 49 Year
  Sex: Female

DRUGS (1)
  1. MAYZENT [Suspect]
     Active Substance: SIPONIMOD
     Indication: Multiple sclerosis
     Dosage: 2 MG, QD
     Route: 048
     Dates: start: 20251120

REACTIONS (3)
  - Muscular weakness [Unknown]
  - Incorrect dose administered [Unknown]
  - Headache [Unknown]

NARRATIVE: CASE EVENT DATE: 20251120
